FAERS Safety Report 13294941 (Version 2)
Quarter: 2017Q2

REPORT INFORMATION
  Report Type: Spontaneous
  Country: US (occurrence: US)
  Receive Date: 20170303
  Receipt Date: 20170426
  Transmission Date: 20170830
  Serious: No
  Sender: FDA-Public Use
  Company Number: US-JNJFOC-20170215689

PATIENT
  Age: 90 Year
  Sex: Male
  Weight: 79.83 kg

DRUGS (1)
  1. XARELTO [Suspect]
     Active Substance: RIVAROXABAN
     Indication: THROMBOSIS
     Route: 048
     Dates: start: 2016

REACTIONS (4)
  - Product packaging issue [Unknown]
  - Blood urine present [Not Recovered/Not Resolved]
  - Inappropriate schedule of drug administration [Unknown]
  - Epistaxis [Recovered/Resolved]

NARRATIVE: CASE EVENT DATE: 2016
